FAERS Safety Report 8938230 (Version 1)
Quarter: 2012Q4

REPORT INFORMATION
  Report Type: 
  Country: CO (occurrence: CO)
  Receive Date: 20121130
  Receipt Date: 20121130
  Transmission Date: 20130627
  Serious: Yes (Other)
  Sender: FDA-Public Use
  Company Number: CO-ELI_LILLY_AND_COMPANY-CO201211006804

PATIENT
  Age: 76 Year
  Sex: Female

DRUGS (11)
  1. BYETTA [Suspect]
     Indication: TYPE 2 DIABETES MELLITUS
     Dosage: 5 ug, bid
     Route: 058
     Dates: start: 20121102
  2. LANTUS [Concomitant]
  3. NOVORAPID [Concomitant]
  4. METFORMIN [Concomitant]
  5. LOSARTAN [Concomitant]
  6. METOPROLOL [Concomitant]
  7. FUROSEMIDE [Concomitant]
  8. LEVOTHYROXINE [Concomitant]
  9. ESOMEPRAZOLE [Concomitant]
  10. ATORVASTATIN [Concomitant]
  11. AMLODIPINE [Concomitant]

REACTIONS (3)
  - Syncope [Unknown]
  - Rectal haemorrhage [Unknown]
  - Arthralgia [Unknown]
